FAERS Safety Report 18223506 (Version 1)
Quarter: 2020Q3

REPORT INFORMATION
  Report Type: Spontaneous
  Country: FR (occurrence: FR)
  Receive Date: 20200902
  Receipt Date: 20200902
  Transmission Date: 20201103
  Serious: Yes (Other)
  Sender: FDA-Public Use
  Company Number: FR-JNJFOC-20200833599

PATIENT
  Age: 68 Year
  Sex: Male

DRUGS (7)
  1. PERINDOPRIL [Concomitant]
     Active Substance: PERINDOPRIL
     Indication: HYPERTENSION
     Dosage: INCONNUE
     Route: 048
     Dates: start: 201806
  2. MEBENDAZOLE. [Suspect]
     Active Substance: MEBENDAZOLE
     Indication: HEPATIC ECHINOCOCCIASIS
     Route: 048
     Dates: start: 20200615, end: 20200619
  3. AMLOR [Concomitant]
     Active Substance: AMLODIPINE BESYLATE
     Indication: HYPERTENSION
     Dosage: INCONNUE
     Route: 048
     Dates: start: 201806
  4. AVAMYS [Concomitant]
     Active Substance: FLUTICASONE FUROATE
     Indication: CHRONIC OBSTRUCTIVE PULMONARY DISEASE
     Dosage: INCONNUE
     Route: 055
     Dates: start: 201806
  5. SYMBICORT [Concomitant]
     Active Substance: BUDESONIDE\FORMOTEROL FUMARATE DIHYDRATE
     Indication: CHRONIC OBSTRUCTIVE PULMONARY DISEASE
     Dosage: INCONNUE
     Route: 055
     Dates: start: 201806
  6. LYRICA [Concomitant]
     Active Substance: PREGABALIN
     Indication: NEURALGIA
     Dosage: INCONNUE
     Route: 048
  7. INDAPAMIDE. [Concomitant]
     Active Substance: INDAPAMIDE
     Indication: HYPERTENSION
     Dosage: INCONNUE
     Route: 048
     Dates: start: 201806

REACTIONS (1)
  - Hepatocellular injury [Recovered/Resolved]

NARRATIVE: CASE EVENT DATE: 20200618
